FAERS Safety Report 12242381 (Version 1)
Quarter: 2016Q2

REPORT INFORMATION
  Report Type: Spontaneous
  Country: US (occurrence: None)
  Receive Date: 20160405
  Receipt Date: 20160405
  Transmission Date: 20160815
  Serious: No
  Sender: FDA-Public Use
  Company Number: None

PATIENT
  Age: 70 Year
  Sex: Female
  Weight: 47.63 kg

DRUGS (12)
  1. DEXALANT [Concomitant]
  2. TYLENOL [Concomitant]
     Active Substance: ACETAMINOPHEN
  3. AMLODIPINE [Concomitant]
     Active Substance: AMLODIPINE BESYLATE
  4. SYNTHROID [Concomitant]
     Active Substance: LEVOTHYROXINE SODIUM
  5. LIPITOR [Concomitant]
     Active Substance: ATORVASTATIN CALCIUM
  6. OSTEO BI-FLEX [Concomitant]
     Active Substance: CHONDROITIN SULFATE A\GLUCOSAMINE
  7. IBESARTAN [Concomitant]
  8. FLAXSEED [Concomitant]
     Active Substance: FLAX SEED
  9. PLAVIX [Concomitant]
     Active Substance: CLOPIDOGREL BISULFATE
  10. PROLIA [Suspect]
     Active Substance: DENOSUMAB
     Indication: OSTEOPOROSIS
     Dosage: 1-6 MONTH INJECTION
     Dates: start: 20150811
  11. ASPIRIN. [Concomitant]
     Active Substance: ASPIRIN
  12. CALCIUM W/D [Concomitant]

REACTIONS (12)
  - Peripheral swelling [None]
  - Mouth ulceration [None]
  - Bacterial infection [None]
  - Pain [None]
  - Arthralgia [None]
  - Pain in extremity [None]
  - Joint swelling [None]
  - Tongue ulceration [None]
  - Immune system disorder [None]
  - Alopecia [None]
  - Dermatitis [None]
  - Muscle spasms [None]

NARRATIVE: CASE EVENT DATE: 20150811
